FAERS Safety Report 7423259-5 (Version None)
Quarter: 2011Q2

REPORT INFORMATION
  Report Type: 
  Country: None (occurrence: None)
  Receive Date: 20110419
  Receipt Date: 20110412
  Transmission Date: 20111010
  Serious: Yes (Death, Other)
  Sender: FDA-Public Use
  Company Number: US-PFIZER INC-2006088828

PATIENT
  Age: 44 Year
  Sex: Male

DRUGS (5)
  1. BENICAR [Suspect]
     Indication: HYPERTENSION
     Dosage: 60 TABLETS AT 40 MG EACH (OVERDOSE AMOUNT)
     Route: 048
     Dates: start: 20060101
  2. AMITRIPTYLINE [Suspect]
     Dosage: OVERDOSE AMOUNT UNKNOWN
     Route: 048
  3. EFFEXOR XR [Suspect]
     Dosage: OVERDOSE AMOUNT UNKNOWN
     Route: 065
  4. NORVASC [Suspect]
     Indication: HYPERTENSION
     Dosage: 120 TABLETS AT 10 MG EACH (OVERDOSE AMOUNT)
     Route: 048
     Dates: start: 20060101
  5. AMLODIPINE BESILATE [Suspect]
     Indication: HYPERTENSION
     Dosage: 90 TABLETS AT 10 MG EACH (OVERDOSE AMOUNT)
     Route: 048
     Dates: start: 20060101

REACTIONS (5)
  - TOXICITY TO VARIOUS AGENTS [None]
  - PULMONARY OEDEMA [None]
  - FOAMING AT MOUTH [None]
  - INTENTIONAL OVERDOSE [None]
  - COMPLETED SUICIDE [None]
